FAERS Safety Report 5390875-4 (Version None)
Quarter: 2007Q3

REPORT INFORMATION
  Report Type: 
  Country: None (occurrence: None)
  Receive Date: 20070716
  Receipt Date: 20070703
  Transmission Date: 20080115
  Serious: Yes (Death)
  Sender: FDA-Public Use
  Company Number: 2007-01995

PATIENT
  Age: 76 Year
  Sex: Male
  Weight: 63 kg

DRUGS (11)
  1. VELCADE [Suspect]
     Indication: DRUG USE FOR UNKNOWN INDICATION
     Dosage: 1.64 MG, ITRAVENOUS
     Route: 042
     Dates: start: 20070528, end: 20070528
  2. ZOMETA [Concomitant]
  3. FUROSEMIDE [Concomitant]
  4. ALLOPURINOL [Concomitant]
  5. DURAGESIC-100 [Concomitant]
  6. OMEPRAZOLE [Concomitant]
  7. SINTROM [Concomitant]
  8. PENTOXIFYLLIN (PENTOXIFYLLINE) [Concomitant]
  9. AMOXICLAV (CLAVULANIC ACID, AMOXICILLIN TRIHYDRATE) [Concomitant]
  10. PLANTABEN (ISPAGHULA HUSK) [Concomitant]
  11. CIPROFLOXACIN [Concomitant]

REACTIONS (17)
  - ACTIVATED PARTIAL THROMBOPLASTIN TIME PROLONGED [None]
  - ACUTE HEPATIC FAILURE [None]
  - AORTIC VALVE DISEASE [None]
  - ASCITES [None]
  - CARDIAC FAILURE [None]
  - CHOLELITHIASIS [None]
  - DILATATION ATRIAL [None]
  - DILATATION VENTRICULAR [None]
  - HEPATIC CYST [None]
  - LIVER DISORDER [None]
  - MITRAL VALVE INCOMPETENCE [None]
  - OEDEMA PERIPHERAL [None]
  - PLEURAL EFFUSION [None]
  - PROTHROMBIN TIME PROLONGED [None]
  - RENAL CYST [None]
  - SPLENOMEGALY [None]
  - TRICUSPID VALVE INCOMPETENCE [None]
